FAERS Safety Report 10182732 (Version 1)
Quarter: 2014Q2

REPORT INFORMATION
  Report Type: Spontaneous
  Country: US (occurrence: None)
  Receive Date: 20140519
  Receipt Date: 20140519
  Transmission Date: 20141212
  Serious: Yes (Life-Threatening, Disabling, Other)
  Sender: FDA-Public Use
  Company Number: None

PATIENT
  Age: 31 Year
  Sex: Female
  Weight: 136.08 kg

DRUGS (3)
  1. DEXAMETHASONE/MARCAINE [Suspect]
     Indication: ARACHNOIDITIS
     Dosage: INJECTED INTO SPINAL AREA
     Dates: start: 20110429
  2. OMNIPAQUE 300 [Suspect]
     Dates: start: 20110429
  3. LIDOCAINE [Suspect]

REACTIONS (8)
  - Sepsis [None]
  - Anuria [None]
  - Neurogenic bladder [None]
  - Ileus paralytic [None]
  - Pain [None]
  - Nausea [None]
  - Meningitis aseptic [None]
  - Cauda equina syndrome [None]
